FAERS Safety Report 6808142-8 (Version None)
Quarter: 2010Q2

REPORT INFORMATION
  Report Type: 
  Country: None (occurrence: None)
  Receive Date: 20100629
  Receipt Date: 20090325
  Transmission Date: 20101027
  Serious: No
  Sender: FDA-Public Use
  Company Number: US-PFIZER INC-2009192991

PATIENT
  Age: 50 Year
  Sex: Male
  Weight: 86.2 kg

DRUGS (2)
  1. VIAGRA [Suspect]
     Indication: ERECTILE DYSFUNCTION
     Dosage: UNK
     Dates: start: 20090101
  2. LEXAPRO [Concomitant]
     Dosage: UNK

REACTIONS (1)
  - THERAPEUTIC RESPONSE INCREASED [None]
